FAERS Safety Report 7745998-9 (Version None)
Quarter: 2011Q3

REPORT INFORMATION
  Report Type: 
  Country: None (occurrence: None)
  Receive Date: 20110913
  Receipt Date: 20110831
  Transmission Date: 20111222
  Serious: Yes (Hospitalization)
  Sender: FDA-Public Use
  Company Number: BR-US-EMD SERONO, INC.-7065824

PATIENT
  Sex: Female

DRUGS (5)
  1. PHENOBARBITAL TAB [Concomitant]
  2. CLONAZEPAM [Concomitant]
  3. REBIF [Suspect]
     Indication: RELAPSING-REMITTING MULTIPLE SCLEROSIS
     Dates: start: 20110204
  4. DEPAKENE [Concomitant]
  5. CARBAMAZEPINE [Concomitant]

REACTIONS (5)
  - EPILEPSY [None]
  - DIZZINESS [None]
  - ANXIETY [None]
  - MALAISE [None]
  - NERVOUSNESS [None]
